FAERS Safety Report 8104473-2 (Version None)
Quarter: 2012Q1

REPORT INFORMATION
  Report Type: 
  Country: None (occurrence: None)
  Receive Date: 20120201
  Receipt Date: 20120125
  Transmission Date: 20120608
  Serious: Yes (Other)
  Sender: FDA-Public Use
  Company Number: US-BAYER-2011-114031

PATIENT
  Age: 80 Year
  Sex: Male
  Weight: 88.435 kg

DRUGS (11)
  1. ASPIRIN [Suspect]
     Indication: ISCHAEMIC HEART DISEASE PROPHYLAXIS
     Dosage: 1 DF, QD
     Route: 048
  2. ZOCOR [Concomitant]
     Indication: BLOOD CHOLESTEROL INCREASED
     Dosage: DAILY DOSE 10 MG
     Route: 048
  3. FISH OIL [Concomitant]
     Dosage: UNK
  4. CELEBREX [Concomitant]
  5. PAXIL [Concomitant]
     Indication: DEPRESSION
     Dosage: DAILY DOSE 20 MG
     Route: 048
  6. PROSCAR [Concomitant]
     Indication: PROSTATIC DISORDER
     Dosage: DAILY DOSE 5 MG
     Route: 048
  7. VITAMIN E [Concomitant]
     Dosage: UNK
  8. CELEBREX [Concomitant]
     Indication: ARTHRALGIA
     Dosage: DAILY DOSE 200 MG
     Route: 048
     Dates: start: 20101101
  9. ACETAMINOPHEN [Concomitant]
     Indication: PAIN
     Dosage: DAILY DOSE 1300 MG
     Route: 048
  10. HYTRIN [Concomitant]
     Indication: HYPERTENSION
     Dosage: DAILY DOSE 5 MG
  11. ZIAC [Concomitant]
     Indication: HYPERTENSION
     Dosage: DAILY DOSE 2.5 MG

REACTIONS (3)
  - GASTRIC HAEMORRHAGE [None]
  - HAEMORRHAGE [None]
  - FAECES DISCOLOURED [None]
